FAERS Safety Report 10173172 (Version 1)
Quarter: 2014Q2

REPORT INFORMATION
  Report Type: Spontaneous
  Country: IT (occurrence: None)
  Receive Date: 20140513
  Receipt Date: 20140513
  Transmission Date: 20141212
  Serious: Yes (Disabling)
  Sender: FDA-Public Use
  Company Number: 2330356

PATIENT
  Age: 55 Year
  Sex: Female

DRUGS (4)
  1. MIDAZOLAM [Suspect]
     Indication: INDUCTION OF ANAESTHESIA
     Dates: start: 201403
  2. DELORAZEPAM [Concomitant]
  3. OLANZAPINE [Concomitant]
  4. VALPROATE SODIUM [Concomitant]

REACTIONS (5)
  - Visual impairment [None]
  - Visual acuity reduced [None]
  - Intraocular pressure increased [None]
  - Disease progression [None]
  - Unwanted awareness during anaesthesia [None]
